FAERS Safety Report 11151751 (Version 1)
Quarter: 2015Q2

REPORT INFORMATION
  Report Type: Spontaneous
  Country: JP (occurrence: None)
  Receive Date: 20150528
  Receipt Date: 20150528
  Transmission Date: 20150821
  Serious: Yes (Hospitalization, Other)
  Sender: FDA-Public Use
  Company Number: 2015SCAL000235

PATIENT
  Age: 66 Year
  Sex: Male

DRUGS (2)
  1. ROSUVASTATIN (ROSUVASTATIN) [Suspect]
     Active Substance: ROSUVASTATIN
     Indication: PRODUCT USED FOR UNKNOWN INDICATION
  2. FAMOTIDINE. [Suspect]
     Active Substance: FAMOTIDINE
     Indication: MALAISE
     Dates: start: 201202

REACTIONS (4)
  - Diabetic nephropathy [None]
  - Tubulointerstitial nephritis [None]
  - Acute kidney injury [None]
  - Haemodialysis [None]
